FAERS Safety Report 21744792 (Version 4)
Quarter: 2023Q1

REPORT INFORMATION
  Report Type: Spontaneous
  Country: JP (occurrence: JP)
  Receive Date: 20221219
  Receipt Date: 20230319
  Transmission Date: 20230417
  Serious: Yes (Other)
  Sender: FDA-Public Use
  Company Number: JP-BEH-2022153215

PATIENT
  Age: 36 Year
  Sex: Male

DRUGS (1)
  1. HIZENTRA [Suspect]
     Active Substance: HUMAN IMMUNOGLOBULIN G
     Indication: Immunoglobulin therapy
     Dosage: UNK, QW
     Route: 058

REACTIONS (5)
  - Chronic inflammatory demyelinating polyradiculoneuropathy [Unknown]
  - Chronic inflammatory demyelinating polyradiculoneuropathy [Unknown]
  - Chronic inflammatory demyelinating polyradiculoneuropathy [Unknown]
  - Chronic inflammatory demyelinating polyradiculoneuropathy [Unknown]
  - Chronic inflammatory demyelinating polyradiculoneuropathy [Unknown]
